FAERS Safety Report 8452095-6 (Version None)
Quarter: 2012Q2

REPORT INFORMATION
  Report Type: 
  Country: None (occurrence: None)
  Receive Date: 20120620
  Receipt Date: 20120614
  Transmission Date: 20120825
  Serious: Yes (Hospitalization)
  Sender: FDA-Public Use
  Company Number: US-GLAXOSMITHKLINE-A0892650A

PATIENT
  Age: 68 Year
  Sex: Male
  Weight: 82.7 kg

DRUGS (8)
  1. PREVACID [Concomitant]
  2. CELEBREX [Concomitant]
  3. HYDROCHLOROTHIAZIDE [Concomitant]
  4. CAPTOPRIL [Concomitant]
  5. METFORMIN HCL [Concomitant]
  6. AVANDIA [Suspect]
     Indication: DIABETES MELLITUS
     Dosage: 4MG PER DAY
     Route: 048
     Dates: start: 20051107, end: 20070501
  7. GLIPIZIDE [Concomitant]
  8. LODINE [Concomitant]

REACTIONS (4)
  - TRANSIENT ISCHAEMIC ATTACK [None]
  - MYOCARDIAL INFARCTION [None]
  - CARDIAC FAILURE [None]
  - VENTRICULAR TACHYCARDIA [None]
